FAERS Safety Report 6989051-0 (Version None)
Quarter: 2010Q3

REPORT INFORMATION
  Report Type: 
  Country: None (occurrence: None)
  Receive Date: 20100916
  Receipt Date: 20091110
  Transmission Date: 20110219
  Serious: Yes (Other)
  Sender: FDA-Public Use
  Company Number: US-PFIZER INC-2009230947

PATIENT
  Sex: Female
  Weight: 68.027 kg

DRUGS (8)
  1. LYRICA [Suspect]
     Indication: NEUROPATHY PERIPHERAL
     Dosage: 75 MG, UNK
     Dates: start: 20080423
  2. LYRICA [Suspect]
     Dosage: 50 MG, 1X/DAY
     Route: 048
     Dates: start: 20071129
  3. LEVOTHYROXINE [Concomitant]
     Indication: HYPERTHYROIDISM
     Dosage: 25 UG, 1X/DAY
     Dates: start: 20040201
  4. METFORMIN [Concomitant]
     Indication: DIABETES MELLITUS
     Dosage: 1000 MG, 2X/DAY
     Dates: start: 20051201
  5. ALLOPURINOL [Concomitant]
     Indication: GOUT
     Dosage: 300 MG, 1X/DAY
     Dates: start: 20060801
  6. PREDNISONE [Concomitant]
     Dosage: 2.5 MG, 1X/DAY
     Dates: start: 20061001
  7. LIBRAX [Concomitant]
     Dosage: UNK
     Dates: start: 20080801
  8. POTASSIUM CITRATE [Concomitant]
     Dosage: UNK

REACTIONS (5)
  - ANAEMIA [None]
  - FATIGUE [None]
  - NEOPLASM MALIGNANT [None]
  - RECTAL HAEMORRHAGE [None]
  - RECTAL POLYP [None]
